FAERS Safety Report 6831182-X (Version None)
Quarter: 2010Q3

REPORT INFORMATION
  Report Type: 
  Country: None (occurrence: None)
  Receive Date: 20100709
  Receipt Date: 20100709
  Transmission Date: 20110219
  Serious: Yes (Other)
  Sender: FDA-Public Use
  Company Number: None

PATIENT
  Age: 49 Year
  Sex: Female

DRUGS (1)
  1. ISOVUE-370 [Suspect]
     Indication: COMPUTERISED TOMOGRAM
     Dosage: 90 ML ONCE IV BOLUS
     Route: 040
     Dates: start: 20100707, end: 20100707

REACTIONS (2)
  - CHEST PAIN [None]
  - DYSPNOEA [None]
